FAERS Safety Report 5351199-4 (Version None)
Quarter: 2007Q2

REPORT INFORMATION
  Report Type: 
  Country: None (occurrence: None)
  Receive Date: 20070608
  Receipt Date: 20070528
  Transmission Date: 20071010
  Serious: Yes (Hospitalization)
  Sender: FDA-Public Use
  Company Number: FR-PFIZER INC-2007043709

PATIENT
  Age: 33 Year
  Sex: Female
  Weight: 98 kg

DRUGS (4)
  1. NEURONTIN [Suspect]
     Dosage: DAILY DOSE:1800MG
     Route: 048
     Dates: start: 20060531, end: 20061029
  2. FOLIC ACID [Suspect]
     Route: 048
     Dates: start: 20060601, end: 20061029
  3. URBANYL [Suspect]
     Route: 048
     Dates: start: 20060621, end: 20061029
  4. LAMICTAL [Suspect]
     Dosage: DAILY DOSE:50MG
     Route: 048
     Dates: start: 20041231, end: 20061024

REACTIONS (1)
  - TOXIC SKIN ERUPTION [None]
